FAERS Safety Report 9840166 (Version 1)
Quarter: 2014Q1

REPORT INFORMATION
  Report Type: Spontaneous
  Country: US (occurrence: None)
  Receive Date: 20140121
  Receipt Date: 20140121
  Transmission Date: 20141002
  Serious: Yes (Other)
  Sender: FDA-Public Use
  Company Number: None

PATIENT
  Sex: Female

DRUGS (1)
  1. TECFIDERA [Suspect]
     Indication: MULTIPLE SCLEROSIS
     Dosage: 1BID
     Route: 048
     Dates: start: 20131016

REACTIONS (4)
  - Flushing [None]
  - Pruritus [None]
  - Diarrhoea [None]
  - Middle insomnia [None]
